FAERS Safety Report 5017416-5 (Version None)
Quarter: 2006Q2

REPORT INFORMATION
  Report Type: 
  Country: None (occurrence: None)
  Receive Date: 20060414
  Receipt Date: 20060224
  Transmission Date: 20061013
  Serious: No
  Sender: FDA-Public Use
  Company Number: 2006SP000944

PATIENT
  Age: 75 Year
  Sex: Male
  Weight: 81.6475 kg

DRUGS (8)
  1. LUNESTA [Suspect]
     Indication: INSOMNIA
     Dosage: 1 MG; PRN; ORAL
     Route: 048
     Dates: start: 20060208
  2. SOTALOL HCL [Concomitant]
  3. WARFARIN SODIUM [Concomitant]
  4. AMLODIPINE [Concomitant]
  5. TAMSULOSIN HCL [Concomitant]
  6. VALSARTAN [Concomitant]
  7. FEXOFENADINE [Concomitant]
  8. DIPHENHYDRAMINE HCL [Concomitant]

REACTIONS (2)
  - DRUG INEFFECTIVE [None]
  - MIDDLE INSOMNIA [None]
